FAERS Safety Report 23487610 (Version 2)
Quarter: 2024Q1

REPORT INFORMATION
  Report Type: Spontaneous
  Country: PT (occurrence: PT)
  Receive Date: 20240206
  Receipt Date: 20240221
  Transmission Date: 20240410
  Serious: Yes (Other)
  Sender: FDA-Public Use
  Company Number: None

PATIENT
  Age: 39 Year
  Sex: Female
  Weight: 57 kg

DRUGS (8)
  1. GADOBUTROL [Suspect]
     Active Substance: GADOBUTROL
     Indication: Magnetic resonance imaging abdominal
     Dosage: 60 ML, ONCE
     Route: 042
     Dates: start: 20240111, end: 20240111
  2. GADOBUTROL [Suspect]
     Active Substance: GADOBUTROL
     Indication: Magnetic resonance imaging pelvic
     Dosage: 1 ML, ONCE
     Route: 042
     Dates: start: 20240111, end: 20240111
  3. BUTYLSCOPOLAMINE BROMIDE [Suspect]
     Active Substance: BUTYLSCOPOLAMINE BROMIDE
     Indication: Abdominal pain
     Dosage: 20 MG, ONCE
     Route: 042
     Dates: start: 20240111, end: 20240111
  4. DYDROGESTERONE\ESTRADIOL [Concomitant]
     Active Substance: DYDROGESTERONE\ESTRADIOL
  5. IBUPROFEN [Concomitant]
     Active Substance: IBUPROFEN
  6. TRIPTORELINA [TRIPTORELIN] [Concomitant]
     Indication: Artificial menopause
  7. PREGABALIN [Concomitant]
     Active Substance: PREGABALIN
  8. TRIPTORELIN [Concomitant]
     Active Substance: TRIPTORELIN
     Indication: Artificial menopause

REACTIONS (8)
  - Feeling hot [Recovered/Resolved]
  - Swelling face [Recovered/Resolved]
  - Dizziness [Recovered/Resolved]
  - Rash [Recovered/Resolved]
  - Syncope [Recovered/Resolved]
  - Tremor [Recovered/Resolved]
  - Muscular weakness [Recovered/Resolved]
  - Flushing [Recovered/Resolved]

NARRATIVE: CASE EVENT DATE: 20240111
